FAERS Safety Report 13564717 (Version 4)
Quarter: 2017Q3

REPORT INFORMATION
  Report Type: Report from Study
  Country: DE (occurrence: DE)
  Receive Date: 20170519
  Receipt Date: 20170824
  Transmission Date: 20171127
  Serious: Yes (Hospitalization)
  Sender: FDA-Public Use
  Company Number: DE-BIOGEN-2017BI00402729

PATIENT
  Age: 41 Year
  Sex: Female
  Weight: 97 kg

DRUGS (14)
  1. TOLPERISON [Concomitant]
     Active Substance: TOLPERISONE HYDROCHLORIDE
     Indication: MUSCLE SPASTICITY
     Route: 048
     Dates: start: 20130703
  2. GABAPENTIN. [Concomitant]
     Active Substance: GABAPENTIN
     Indication: PRODUCT USED FOR UNKNOWN INDICATION
     Route: 065
     Dates: start: 201602
  3. ASCOTOP NASAL [Concomitant]
     Indication: MIGRAINE
     Route: 045
     Dates: start: 20140310
  4. DYNEXAN [Concomitant]
     Active Substance: LIDOCAINE HYDROCHLORIDE
     Indication: PRODUCT USED FOR UNKNOWN INDICATION
     Dosage: GINGIVAL
     Route: 048
  5. RISPERIDONE. [Concomitant]
     Active Substance: RISPERIDONE
     Indication: PRODUCT USED FOR UNKNOWN INDICATION
     Route: 065
  6. BISOPROLOL [Concomitant]
     Active Substance: BISOPROLOL
     Indication: HYPERTENSION
     Route: 048
     Dates: start: 20130807
  7. GABAPENTIN. [Concomitant]
     Active Substance: GABAPENTIN
     Route: 065
  8. ZINBRYTA [Suspect]
     Active Substance: DACLIZUMAB
     Indication: RELAPSING-REMITTING MULTIPLE SCLEROSIS
     Route: 058
     Dates: start: 20161222
  9. DRONABINOL. [Concomitant]
     Active Substance: DRONABINOL
     Indication: PAIN
     Dosage: 2..5PERCENT
     Route: 065
     Dates: start: 201602
  10. VESICUR [Concomitant]
     Indication: HYPERTONIC BLADDER
     Route: 065
     Dates: start: 20150513
  11. LAIF [Concomitant]
     Indication: DEPRESSION
     Route: 048
     Dates: start: 20150513
  12. DEKRISTOL [Concomitant]
     Active Substance: CHOLECALCIFEROL
     Indication: VITAMIN D DEFICIENCY
     Route: 065
     Dates: start: 20150309
  13. VIGIL [Concomitant]
     Active Substance: MODAFINIL
     Indication: DEPRESSION
     Route: 048
     Dates: start: 201404
  14. PROTHYRID [Concomitant]
     Active Substance: LEVOTHYROXINE SODIUM
     Indication: THYROID DISORDER
     Route: 048
     Dates: start: 20080101

REACTIONS (1)
  - Multiple sclerosis relapse [Recovered/Resolved with Sequelae]

NARRATIVE: CASE EVENT DATE: 20170510
